FAERS Safety Report 10013116 (Version 1)
Quarter: 2014Q1

REPORT INFORMATION
  Report Type: Spontaneous
  Country: US (occurrence: US)
  Receive Date: 20140314
  Receipt Date: 20140314
  Transmission Date: 20141002
  Serious: Yes (Other)
  Sender: FDA-Public Use
  Company Number: US-ASTRAZENECA-2014SE16348

PATIENT
  Age: 57 Year
  Sex: Female

DRUGS (4)
  1. LISINOPRIL [Suspect]
     Route: 048
  2. METOPROLOL [Suspect]
     Route: 065
  3. EXFORGE [Concomitant]
  4. CLONIDINE [Concomitant]

REACTIONS (4)
  - Blood pressure increased [Recovered/Resolved]
  - Migraine [Unknown]
  - Chest discomfort [Unknown]
  - Drug ineffective [Unknown]
